FAERS Safety Report 8814197 (Version 1)
Quarter: 2012Q4

REPORT INFORMATION
  Report Type: Spontaneous
  Country: MY (occurrence: None)
  Receive Date: 20120925
  Receipt Date: 20120925
  Transmission Date: 20130627
  Serious: Yes (Other)
  Sender: FDA-Public Use
  Company Number: MY-1194164

PATIENT
  Age: 4 Day
  Sex: Male

DRUGS (1)
  1. CYCLOMYDRIL [Suspect]
     Route: 047

REACTIONS (2)
  - Bradycardia [None]
  - Apnoea [None]
